FAERS Safety Report 9146823 (Version 2)
Quarter: 2013Q1

REPORT INFORMATION
  Report Type: Spontaneous
  Country: US (occurrence: None)
  Receive Date: 20130204
  Receipt Date: 20130219
  Transmission Date: 20140127
  Serious: Yes (Death)
  Sender: FDA-Public Use
  Company Number: ALK-2013-001225

PATIENT
  Age: 24 Year
  Sex: Male
  Weight: 103.4 kg

DRUGS (1)
  1. VIVITROL [Suspect]
     Indication: PRODUCT USED FOR UNKNOWN INDICATION
     Dosage: 380 MG,  QMO,  INTRAMUSCULAR
     Route: 030

REACTIONS (1)
  - No adverse event [None]
